FAERS Safety Report 10871055 (Version 1)
Quarter: 2015Q1

REPORT INFORMATION
  Report Type: Spontaneous
  Country: US (occurrence: US)
  Receive Date: 20150226
  Receipt Date: 20150226
  Transmission Date: 20150721
  Serious: Yes (Death, Other)
  Sender: FDA-Public Use
  Company Number: US-BANPHARM-20153559

PATIENT
  Age: 63 Year
  Sex: Female

DRUGS (1)
  1. VALPROIC ACID UNKNOWN PRODUCT [Suspect]
     Active Substance: VALPROIC ACID

REACTIONS (11)
  - Coronary artery disease [Not Recovered/Not Resolved]
  - Hepatic steatosis [Not Recovered/Not Resolved]
  - Hypotension [None]
  - Completed suicide [Fatal]
  - Death [Fatal]
  - Pancreatitis haemorrhagic [Fatal]
  - Pneumonia [Not Recovered/Not Resolved]
  - Haemodialysis [None]
  - Depressed level of consciousness [None]
  - Toxicity to various agents [None]
  - Intentional overdose [Fatal]
